FAERS Safety Report 23577943 (Version 1)
Quarter: 2024Q1

REPORT INFORMATION
  Report Type: Spontaneous
  Country: US (occurrence: US)
  Receive Date: 20240228
  Receipt Date: 20240228
  Transmission Date: 20240410
  Serious: Yes (Other)
  Sender: FDA-Public Use
  Company Number: US-NOVOPROD-1181838

PATIENT
  Age: 77 Year
  Sex: Female

DRUGS (2)
  1. RYBELSUS [Suspect]
     Active Substance: SEMAGLUTIDE
     Indication: Diabetes mellitus
     Dosage: UNK
     Route: 048
     Dates: start: 202305
  2. METFORMIN [Concomitant]
     Active Substance: METFORMIN HYDROCHLORIDE
     Indication: Diabetes mellitus
     Dosage: UNK

REACTIONS (6)
  - Urinary incontinence [Unknown]
  - Feeling abnormal [Unknown]
  - Asthenia [Unknown]
  - Duodenogastric reflux [Recovered/Resolved]
  - Diarrhoea [Unknown]
  - Eructation [Not Recovered/Not Resolved]
